FAERS Safety Report 26006844 (Version 2)
Quarter: 2025Q4

REPORT INFORMATION
  Report Type: Spontaneous
  Country: US (occurrence: US)
  Receive Date: 20251106
  Receipt Date: 20251217
  Transmission Date: 20260118
  Serious: No
  Sender: ELI LILLY AND COMPANY
  Company Number: US-ELI_LILLY_AND_COMPANY-US202511000753

PATIENT
  Age: 76 Year
  Sex: Female
  Weight: 85 kg

DRUGS (12)
  1. KISUNLA [Suspect]
     Active Substance: DONANEMAB-AZBT
     Indication: Dementia
     Dosage: UNK, MONTHLY (1/M), 1ST INFUSION
     Route: 042
     Dates: start: 20241120
  2. KISUNLA [Suspect]
     Active Substance: DONANEMAB-AZBT
     Dosage: UNK, MONTHLY (1/M), 2ND INFUSION
     Route: 042
     Dates: start: 20241218
  3. KISUNLA [Suspect]
     Active Substance: DONANEMAB-AZBT
     Dosage: UNK, MONTHLY (1/M), 3RD INFUSION
     Route: 042
     Dates: start: 20250115
  4. KISUNLA [Suspect]
     Active Substance: DONANEMAB-AZBT
     Dosage: UNK, MONTHLY (1/M), 4TH INFUSION
     Route: 042
     Dates: start: 20250212
  5. KISUNLA [Suspect]
     Active Substance: DONANEMAB-AZBT
     Dosage: UNK, MONTHLY (1/M), 5TH INFUSION
     Route: 042
     Dates: start: 20250312
  6. KISUNLA [Suspect]
     Active Substance: DONANEMAB-AZBT
     Dosage: UNK, MONTHLY (1/M), 6TH INFUSION
     Route: 042
     Dates: start: 20250410
  7. KISUNLA [Suspect]
     Active Substance: DONANEMAB-AZBT
     Dosage: UNK, MONTHLY (1/M), 7TH INFUSION
     Route: 042
     Dates: start: 20250507
  8. KISUNLA [Suspect]
     Active Substance: DONANEMAB-AZBT
     Dosage: UNK, MONTHLY (1/M), 8TH INFUSION
     Route: 042
     Dates: start: 20250604
  9. KISUNLA [Suspect]
     Active Substance: DONANEMAB-AZBT
     Dosage: UNK, MONTHLY (1/M), 9TH INFUSION
     Route: 042
     Dates: start: 20250702
  10. KISUNLA [Suspect]
     Active Substance: DONANEMAB-AZBT
     Dosage: UNK, MONTHLY (1/M), 10TH INFUSION
     Route: 042
     Dates: start: 20250730
  11. KISUNLA [Suspect]
     Active Substance: DONANEMAB-AZBT
     Dosage: UNK, MONTHLY (1/M), 11TH INFUSION
     Route: 042
     Dates: start: 20250827
  12. KISUNLA [Suspect]
     Active Substance: DONANEMAB-AZBT
     Dosage: UNK, MONTHLY (1/M), 12TH INFUSION
     Route: 042
     Dates: start: 20250924

REACTIONS (2)
  - Amyloid related imaging abnormality-microhaemorrhages and haemosiderin deposits [Not Recovered/Not Resolved]
  - Amyloid related imaging abnormality-oedema/effusion [Not Recovered/Not Resolved]
